FAERS Safety Report 6977326-0 (Version None)
Quarter: 2010Q3

REPORT INFORMATION
  Report Type: 
  Country: None (occurrence: None)
  Receive Date: 20100910
  Receipt Date: 20100722
  Transmission Date: 20110219
  Serious: Yes (Other)
  Sender: FDA-Public Use
  Company Number: PHHY2010US53217

PATIENT
  Age: 51 Year
  Sex: Female

DRUGS (5)
  1. RECLAST [Suspect]
     Indication: OSTEOPOROSIS
     Dosage: 5 MG
     Route: 042
     Dates: start: 20100630
  2. OMEPRAZOLE [Concomitant]
     Dosage: UNK
  3. ATIVAN [Concomitant]
  4. LORTAB [Concomitant]
  5. RESTORIL [Concomitant]
     Dosage: UNK

REACTIONS (9)
  - ARTHRALGIA [None]
  - BACK PAIN [None]
  - BLOOD URINE PRESENT [None]
  - ERUCTATION [None]
  - OROPHARYNGEAL PAIN [None]
  - PAIN [None]
  - PAIN IN EXTREMITY [None]
  - PYREXIA [None]
  - URINARY TRACT INFECTION [None]
